FAERS Safety Report 6011273-6 (Version None)
Quarter: 2008Q4

REPORT INFORMATION
  Report Type: 
  Country: None (occurrence: None)
  Receive Date: 20081218
  Receipt Date: 20081205
  Transmission Date: 20090506
  Serious: Yes (Other)
  Sender: FDA-Public Use
  Company Number: PHHY2008JP29067

PATIENT
  Sex: Male
  Weight: 157 kg

DRUGS (5)
  1. LAMISIL [Suspect]
     Dosage: 125 MG/DAY
     Route: 048
     Dates: start: 20080901, end: 20081114
  2. TEGRETOL [Interacting]
     Dosage: 800 MG, 4 DF/DAY
     Route: 048
     Dates: start: 19720101
  3. EXCEGRAN [Interacting]
     Indication: EPILEPSY
     Dosage: 200 MG, 4 DF/DAY
     Route: 048
     Dates: start: 20080524
  4. DIAZEPAM [Interacting]
     Dosage: 6 MG, 3 DF/DAY
     Route: 048
     Dates: start: 20081114
  5. ASPIRIN [Concomitant]
     Indication: EPILEPSY
     Dosage: 100 MG, 1DF
     Route: 048
     Dates: start: 20080517

REACTIONS (5)
  - ABNORMAL BEHAVIOUR [None]
  - ANTICONVULSANT DRUG LEVEL DECREASED [None]
  - EPILEPSY [None]
  - SPEECH DISORDER [None]
  - VISION BLURRED [None]
